APPROVED DRUG PRODUCT: PREGABALIN
Active Ingredient: PREGABALIN
Strength: 200MG
Dosage Form/Route: CAPSULE;ORAL
Application: A208677 | Product #006 | TE Code: AB
Applicant: SCIEGEN PHARMACEUTICALS INC
Approved: Jul 19, 2019 | RLD: No | RS: No | Type: RX